FAERS Safety Report 16242250 (Version 1)
Quarter: 2019Q2

REPORT INFORMATION
  Report Type: Spontaneous
  Country: CA (occurrence: CA)
  Receive Date: 20190426
  Receipt Date: 20190426
  Transmission Date: 20190711
  Serious: Yes (Disabling)
  Sender: FDA-Public Use
  Company Number: CA-TEVA-2019-CA-1041772

PATIENT
  Age: 63 Year
  Sex: Male
  Weight: 106.69 kg

DRUGS (1)
  1. ACT AMLODIPINE 10 MG TABLET [Suspect]
     Active Substance: AMLODIPINE MESYLATE
     Indication: HYPERTENSION
     Dosage: 10 MILLIGRAM DAILY;
     Route: 048

REACTIONS (2)
  - Peripheral swelling [Recovered/Resolved]
  - Vision blurred [Recovered/Resolved]
